FAERS Safety Report 22370596 (Version 3)
Quarter: 2023Q2

REPORT INFORMATION
  Report Type: Spontaneous
  Country: US (occurrence: US)
  Receive Date: 20230526
  Receipt Date: 20230609
  Transmission Date: 20230721
  Serious: No
  Sender: FDA-Public Use
  Company Number: US-LUPIN PHARMACEUTICALS INC.-2023-03952

PATIENT

DRUGS (1)
  1. AMLODIPINE BESYLATE [Suspect]
     Active Substance: AMLODIPINE BESYLATE
     Indication: Product used for unknown indication
     Dosage: UNK
     Route: 065
     Dates: start: 20230403

REACTIONS (5)
  - Hypertension [Recovering/Resolving]
  - Heart rate increased [Recovering/Resolving]
  - Product substitution issue [Unknown]
  - Condition aggravated [Unknown]
  - Illness [Unknown]
